FAERS Safety Report 10207123 (Version 1)
Quarter: 2014Q2

REPORT INFORMATION
  Report Type: Spontaneous
  Country: US (occurrence: US)
  Receive Date: 20140530
  Receipt Date: 20140530
  Transmission Date: 20141212
  Serious: No
  Sender: FDA-Public Use
  Company Number: US-GLAXOSMITHKLINE-A1010161A

PATIENT
  Sex: Female

DRUGS (2)
  1. VENTOLIN [Suspect]
     Indication: ASTHMA
     Route: 065
     Dates: start: 201303
  2. ADVAIR HFA [Suspect]
     Indication: RESPIRATORY DISORDER
     Route: 065
     Dates: start: 20130108

REACTIONS (3)
  - Overdose [Unknown]
  - Memory impairment [Unknown]
  - Incorrect dosage administered [Unknown]
